FAERS Safety Report 15515572 (Version 34)
Quarter: 2022Q3

REPORT INFORMATION
  Report Type: Other
  Country: DE (occurrence: None)
  Receive Date: 20181017
  Receipt Date: 20220901
  Transmission Date: 20221027
  Serious: Yes (Other)
  Sender: FDA-Public Use
  Company Number: DE-ROCHE-2199160

PATIENT
  Age: 35 Year
  Sex: Female

DRUGS (10)
  1. OCREVUS [Suspect]
     Active Substance: OCRELIZUMAB
     Indication: Relapsing-remitting multiple sclerosis
     Dosage: SUBSEQUENT DOSE ON 12/JUL/2018
     Route: 042
     Dates: start: 20180628, end: 20180712
  2. OCREVUS [Suspect]
     Active Substance: OCRELIZUMAB
     Route: 042
     Dates: start: 20201126, end: 20201210
  3. OCREVUS [Suspect]
     Active Substance: OCRELIZUMAB
     Route: 042
     Dates: start: 20201210, end: 202104
  4. DALFAMPRIDINE [Concomitant]
     Active Substance: DALFAMPRIDINE
  5. DALFAMPRIDINE [Concomitant]
     Active Substance: DALFAMPRIDINE
     Dosage: 1-0-1
  6. MEMANTINE [Concomitant]
     Active Substance: MEMANTINE
     Dosage: 1_0_0
  7. DARIFENACIN HYDROBROMIDE [Concomitant]
     Active Substance: DARIFENACIN HYDROBROMIDE
     Dosage: 1-0-0
  8. BACLOFEN [Concomitant]
     Active Substance: BACLOFEN
     Dosage: AS REQUIRED (5-10 MG)
  9. NITROFURANTOIN [Concomitant]
     Active Substance: NITROFURANTOIN
     Indication: Prophylaxis urinary tract infection
     Dosage: AT NIGHT
  10. NITROXOLIN FORTE [Concomitant]

REACTIONS (10)
  - Urinary tract infection bacterial [Recovered/Resolved]
  - Muscular weakness [Recovered/Resolved]
  - Alopecia [Recovered/Resolved]
  - Menstrual disorder [Recovered/Resolved]
  - Hordeolum [Recovered/Resolved]
  - Gait disturbance [Recovering/Resolving]
  - Fatigue [Recovered/Resolved]
  - Micturition urgency [Recovered/Resolved]
  - Muscle spasticity [Recovered/Resolved]
  - Parkinsonian gait [Recovered/Resolved]

NARRATIVE: CASE EVENT DATE: 20180628
